FAERS Safety Report 6524425-3 (Version None)
Quarter: 2010Q1

REPORT INFORMATION
  Report Type: 
  Country: None (occurrence: None)
  Receive Date: 20100104
  Receipt Date: 20091223
  Transmission Date: 20100710
  Serious: Yes (Hospitalization)
  Sender: FDA-Public Use
  Company Number: DE-BIOGENIDEC-2009BI041984

PATIENT
  Age: 44 Year
  Sex: Female
  Weight: 44 kg

DRUGS (4)
  1. TYSABRI [Suspect]
     Indication: MULTIPLE SCLEROSIS
     Route: 042
     Dates: start: 20080625
  2. HORMONES [Concomitant]
     Indication: HYPOTHYROIDISM
  3. ESTRADIOL [Concomitant]
  4. L-THYROXIN [Concomitant]

REACTIONS (1)
  - CHEMICAL BURNS OF EYE [None]
